FAERS Safety Report 14557561 (Version 1)
Quarter: 2018Q1

REPORT INFORMATION
  Report Type: Spontaneous
  Country: US (occurrence: US)
  Receive Date: 20180221
  Receipt Date: 20180221
  Transmission Date: 20180509
  Serious: Yes (Life-Threatening)
  Sender: FDA-Public Use
  Company Number: US-SA-2018SA040257

PATIENT
  Age: 65 Year
  Sex: Female

DRUGS (2)
  1. SOLIQUA 100/33 [Suspect]
     Active Substance: INSULIN GLARGINE\LIXISENATIDE
     Indication: TYPE 2 DIABETES MELLITUS
     Dosage: QD-AT NIGHT, CHANGED TO MORNING DOSE:20 UNIT(S)
     Route: 065
     Dates: start: 201801
  2. SOLOSTAR [Suspect]
     Active Substance: DEVICE
     Indication: TYPE 2 DIABETES MELLITUS
     Dates: start: 201801

REACTIONS (9)
  - Burning sensation [Unknown]
  - Injection site pruritus [Unknown]
  - Feeling abnormal [Unknown]
  - Tremor [Unknown]
  - Nasal discomfort [Unknown]
  - Dyspnoea [Recovering/Resolving]
  - Injection site vesicles [Unknown]
  - Scratch [Unknown]
  - Tongue disorder [Unknown]

NARRATIVE: CASE EVENT DATE: 2018
